FAERS Safety Report 8150857-6 (Version None)
Quarter: 2012Q1

REPORT INFORMATION
  Report Type: 
  Country: None (occurrence: None)
  Receive Date: 20120220
  Receipt Date: 20120207
  Transmission Date: 20120608
  Serious: Yes (Life-Threatening)
  Sender: FDA-Public Use
  Company Number: NL-ELI_LILLY_AND_COMPANY-NL201202002419

PATIENT
  Sex: Male
  Weight: 75 kg

DRUGS (1)
  1. ZYPREXA [Suspect]
     Indication: SCHIZOPHRENIA
     Dosage: 15 MG, QD
     Route: 065
     Dates: start: 20010501

REACTIONS (6)
  - MUSCULOSKELETAL STIFFNESS [None]
  - DYSTONIA [None]
  - PARKINSONISM [None]
  - ANXIETY [None]
  - SCHIZOPHRENIA, CATATONIC TYPE [None]
  - MOOD ALTERED [None]
